FAERS Safety Report 17563821 (Version 2)
Quarter: 2020Q3

REPORT INFORMATION
  Report Type: Spontaneous
  Country: US (occurrence: US)
  Receive Date: 20200320
  Receipt Date: 20200904
  Transmission Date: 20201102
  Serious: Yes (Other)
  Sender: FDA-Public Use
  Company Number: US-ASTRAZENECA-2020SE37551

PATIENT
  Age: 25991 Day
  Sex: Male

DRUGS (98)
  1. NEXIUM 24HR [Suspect]
     Active Substance: ESOMEPRAZOLE MAGNESIUM
     Indication: GASTROOESOPHAGEAL REFLUX DISEASE
     Route: 048
     Dates: start: 2011, end: 2019
  2. ATORVASTATIN [Concomitant]
     Active Substance: ATORVASTATIN
     Indication: BLOOD CHOLESTEROL INCREASED
     Dates: start: 2012
  3. CYCLOBENZAPRINE. [Concomitant]
     Active Substance: CYCLOBENZAPRINE
     Dosage: 250.0MG UNKNOWN
  4. PROMETHAZINE [Concomitant]
     Active Substance: PROMETHAZINE HYDROCHLORIDE
     Dosage: 250.0MG UNKNOWN
  5. CHERATUSSIN [Concomitant]
     Active Substance: AMMONIUM CHLORIDE\DEXTROMETHORPHAN\SODIUM CITRATE
     Dosage: 250.0MG UNKNOWN
  6. LOSARTAN?HCTZ [Concomitant]
     Active Substance: HYDROCHLOROTHIAZIDE\LOSARTAN
     Dosage: 250.0MG UNKNOWN
  7. OXYCONTIN [Concomitant]
     Active Substance: OXYCODONE HYDROCHLORIDE
     Dosage: 250.0MG UNKNOWN
  8. AMBIEN [Concomitant]
     Active Substance: ZOLPIDEM TARTRATE
     Dosage: 250.0MG UNKNOWN
  9. LACTIC ACID. [Concomitant]
     Active Substance: LACTIC ACID
     Dosage: 250.0MG UNKNOWN
  10. NEXIUM [Suspect]
     Active Substance: ESOMEPRAZOLE MAGNESIUM
     Indication: DYSPEPSIA
     Route: 048
     Dates: start: 2011, end: 2019
  11. NEXIUM [Suspect]
     Active Substance: ESOMEPRAZOLE MAGNESIUM
     Indication: DYSPEPSIA
     Dosage: 40.0MG UNKNOWN
     Route: 048
     Dates: start: 2001, end: 2016
  12. NEXIUM [Suspect]
     Active Substance: ESOMEPRAZOLE MAGNESIUM
     Indication: GASTROOESOPHAGEAL REFLUX DISEASE
     Dosage: GENERIC40.0MG UNKNOWN
     Route: 065
     Dates: start: 2016
  13. PROTONIX [Suspect]
     Active Substance: PANTOPRAZOLE SODIUM
     Indication: GASTROOESOPHAGEAL REFLUX DISEASE
     Dosage: 40.0MG UNKNOWN
     Route: 048
     Dates: start: 20180301
  14. HYDROCODONE?ACETAMINOPHEN [Concomitant]
     Active Substance: ACETAMINOPHEN\HYDROCODONE
     Dosage: 250.0MG UNKNOWN
  15. SINGULAIR [Concomitant]
     Active Substance: MONTELUKAST SODIUM
     Dosage: 250.0MG UNKNOWN
  16. DIPHENOXYLATE?ATROPINE [Concomitant]
     Active Substance: ATROPINE\DIPHENOXYLATE
     Dosage: 250.0MG UNKNOWN
  17. NARCAN [Concomitant]
     Active Substance: NALOXONE HYDROCHLORIDE
     Dosage: 250.0MG UNKNOWN
  18. LABETALOL [Concomitant]
     Active Substance: LABETALOL\LABETALOL HYDROCHLORIDE
     Dosage: 250.0MG UNKNOWN
  19. MAGNESIUM HYDROXIDE. [Concomitant]
     Active Substance: MAGNESIUM HYDROXIDE
     Dosage: 250.0MG UNKNOWN
  20. ULTRAM [Concomitant]
     Active Substance: TRAMADOL HYDROCHLORIDE
     Dosage: 250.0MG UNKNOWN
  21. NEXIUM [Suspect]
     Active Substance: ESOMEPRAZOLE MAGNESIUM
     Indication: GASTROOESOPHAGEAL REFLUX DISEASE
     Dosage: 40.0MG UNKNOWN
     Route: 048
     Dates: start: 2001, end: 2016
  22. PROTONIX [Suspect]
     Active Substance: PANTOPRAZOLE SODIUM
     Indication: DYSPEPSIA
     Dosage: 40.0MG UNKNOWN
     Route: 048
     Dates: start: 20180301
  23. BENADRYL [Concomitant]
     Active Substance: DIPHENHYDRAMINE HYDROCHLORIDE
     Indication: MULTIPLE ALLERGIES
     Dates: start: 1996
  24. ALKA?SELTZER [Concomitant]
     Active Substance: ANHYDROUS CITRIC ACID\ASPIRIN\SODIUM BICARBONATE
  25. CEFTRIAXONE. [Concomitant]
     Active Substance: CEFTRIAXONE
     Dosage: 250.0MG UNKNOWN
     Dates: start: 20191208
  26. AMOXICILLIN. [Concomitant]
     Active Substance: AMOXICILLIN
     Dosage: 250.0MG UNKNOWN
  27. IBUPROFEN. [Concomitant]
     Active Substance: IBUPROFEN
     Dosage: 250.0MG UNKNOWN
  28. DEXAMETHA/NYSTATIN/DIPHENHIS [Concomitant]
     Dosage: 250.0MG UNKNOWN
  29. NAPROXEN. [Concomitant]
     Active Substance: NAPROXEN
     Dosage: 250.0MG UNKNOWN
  30. AMINOPHYLLINE. [Concomitant]
     Active Substance: AMINOPHYLLINE
     Dosage: 250.0MG UNKNOWN
  31. CORTISOL [Concomitant]
     Active Substance: HYDROCORTISONE
     Dosage: 250.0MG UNKNOWN
  32. PRILOSEC OTC [Suspect]
     Active Substance: OMEPRAZOLE MAGNESIUM
     Indication: DYSPEPSIA
     Route: 048
     Dates: start: 2011, end: 2019
  33. PRILOSEC OTC [Suspect]
     Active Substance: OMEPRAZOLE MAGNESIUM
     Indication: GASTROOESOPHAGEAL REFLUX DISEASE
     Route: 048
     Dates: start: 2011, end: 2019
  34. LOSARTAN. [Concomitant]
     Active Substance: LOSARTAN
     Indication: HYPERTENSION
     Dates: start: 2016
  35. LORATIDINE [Concomitant]
     Active Substance: LORATADINE
     Indication: MULTIPLE ALLERGIES
     Dates: start: 2014, end: 2017
  36. ATORVASTATIN CALCIUM. [Concomitant]
     Active Substance: ATORVASTATIN CALCIUM
  37. LOSARTAN POTASSIUM. [Concomitant]
     Active Substance: LOSARTAN POTASSIUM
  38. AZITHROMYCIN ANHYDROUS. [Concomitant]
     Active Substance: AZITHROMYCIN ANHYDROUS
     Dosage: 250.0MG UNKNOWN
  39. PREDNISONE. [Concomitant]
     Active Substance: PREDNISONE
     Dosage: 250.0MG UNKNOWN
  40. GAVILYTE [Concomitant]
     Dosage: 250.0MG UNKNOWN
  41. PROCHLORPERAZINE. [Concomitant]
     Active Substance: PROCHLORPERAZINE
     Dosage: 250.0MG UNKNOWN
  42. ZOFRAN [Concomitant]
     Active Substance: ONDANSETRON HYDROCHLORIDE
     Dosage: 250.0MG UNKNOWN
  43. ROBITUSSIN (GUAIFENESIN) [Concomitant]
     Active Substance: GUAIFENESIN
     Dosage: 250.0MG UNKNOWN
  44. CORTISONE [Concomitant]
     Active Substance: CORTISONE
     Dosage: 250.0MG UNKNOWN
  45. VIAGRA [Concomitant]
     Active Substance: SILDENAFIL CITRATE
     Dosage: 250.0MG UNKNOWN
  46. FLUARIX NOS [Concomitant]
     Active Substance: INFLUENZA VIRUS VACCINE
     Dosage: 250.0MG UNKNOWN
  47. PHOSPHORUS [Concomitant]
     Active Substance: PHOSPHORUS
     Dosage: 250.0MG UNKNOWN
  48. FLUTICASONE PROPIONATE. [Concomitant]
     Active Substance: FLUTICASONE PROPIONATE
     Dosage: 250.0MG UNKNOWN
  49. OPTIVAR [Concomitant]
     Active Substance: AZELASTINE HYDROCHLORIDE
  50. ERYTHROPOETIN [Concomitant]
     Active Substance: ERYTHROPOIETIN
  51. NEXIUM [Suspect]
     Active Substance: ESOMEPRAZOLE MAGNESIUM
     Indication: GASTROOESOPHAGEAL REFLUX DISEASE
     Route: 048
     Dates: start: 2011, end: 2019
  52. PROTONIX [Suspect]
     Active Substance: PANTOPRAZOLE SODIUM
     Indication: GASTROOESOPHAGEAL REFLUX DISEASE
     Dosage: 40.0MG UNKNOWN
     Route: 065
     Dates: start: 2018
  53. SERTRALINE [Concomitant]
     Active Substance: SERTRALINE HYDROCHLORIDE
     Indication: DEPRESSION
     Dates: start: 2012
  54. FLUTICASONE. [Concomitant]
     Active Substance: FLUTICASONE
     Indication: MULTIPLE ALLERGIES
     Dates: start: 2011
  55. ZANTAC [Concomitant]
     Active Substance: RANITIDINE HYDROCHLORIDE
  56. ASPIRIN. [Concomitant]
     Active Substance: ASPIRIN
  57. HYDROCODONE?CHLORPHEN [Concomitant]
     Dosage: 250.0MG UNKNOWN
  58. ZYRTEC [Concomitant]
     Active Substance: CETIRIZINE HYDROCHLORIDE
     Dosage: 250.0MG UNKNOWN
  59. CLARITHROMYCIN. [Concomitant]
     Active Substance: CLARITHROMYCIN
     Dosage: 250.0MG UNKNOWN
  60. LEVOFLOXACIN. [Concomitant]
     Active Substance: LEVOFLOXACIN
     Dosage: 250.0MG UNKNOWN
  61. SODIUM CHLORIDE. [Concomitant]
     Active Substance: SODIUM CHLORIDE
     Dosage: 250.0MG UNKNOWN
  62. LATEX [Concomitant]
     Active Substance: NATURAL LATEX RUBBER
     Dosage: 250.0MG UNKNOWN
  63. FENTANYL. [Concomitant]
     Active Substance: FENTANYL
     Dosage: 250.0MG UNKNOWN
  64. POTASSIUM CHLORIDE. [Concomitant]
     Active Substance: POTASSIUM CHLORIDE
     Dosage: 250.0MG UNKNOWN
  65. DECADRON [Concomitant]
     Active Substance: DEXAMETHASONE
     Dosage: 250.0MG UNKNOWN
  66. CLOBETASOL PROPIONATE. [Concomitant]
     Active Substance: CLOBETASOL PROPIONATE
  67. NEXIUM [Suspect]
     Active Substance: ESOMEPRAZOLE MAGNESIUM
     Indication: DYSPEPSIA
     Dosage: GENERIC40.0MG UNKNOWN
     Route: 065
     Dates: start: 2016
  68. PRILOSEC OTC [Suspect]
     Active Substance: OMEPRAZOLE MAGNESIUM
     Indication: GASTROOESOPHAGEAL REFLUX DISEASE
     Dosage: 20.0MG UNKNOWN
     Route: 048
     Dates: start: 2006, end: 2018
  69. PROTONIX [Suspect]
     Active Substance: PANTOPRAZOLE SODIUM
     Indication: DYSPEPSIA
     Dosage: 40.0MG UNKNOWN
     Route: 065
     Dates: start: 2018
  70. FLUCONAZOLE. [Concomitant]
     Active Substance: FLUCONAZOLE
     Indication: CONGENITAL INFECTION
     Dates: start: 2017
  71. DIPYRIDAMOLE. [Concomitant]
     Active Substance: DIPYRIDAMOLE
     Dosage: 250.0MG UNKNOWN
  72. BISACODYL. [Concomitant]
     Active Substance: BISACODYL
     Dosage: 250.0MG UNKNOWN
  73. NEXIUM 24HR [Suspect]
     Active Substance: ESOMEPRAZOLE MAGNESIUM
     Indication: DYSPEPSIA
     Route: 048
     Dates: start: 2011, end: 2019
  74. NEXIUM 24HR [Suspect]
     Active Substance: ESOMEPRAZOLE MAGNESIUM
     Indication: DYSPEPSIA
     Dosage: 20.0MG UNKNOWN
     Route: 048
     Dates: start: 2006, end: 2018
  75. NEXIUM 24HR [Suspect]
     Active Substance: ESOMEPRAZOLE MAGNESIUM
     Indication: GASTROOESOPHAGEAL REFLUX DISEASE
     Dosage: 20.0MG UNKNOWN
     Route: 048
     Dates: start: 2006, end: 2018
  76. PRILOSEC OTC [Suspect]
     Active Substance: OMEPRAZOLE MAGNESIUM
     Indication: DYSPEPSIA
     Dosage: 20.0MG UNKNOWN
     Route: 048
     Dates: start: 2006, end: 2018
  77. SERTRALINE [Concomitant]
     Active Substance: SERTRALINE HYDROCHLORIDE
     Indication: ANXIETY
     Dates: start: 2012
  78. CLOTRIMAZOLE AND BETAMETHASONE DIPROPIONATE [Concomitant]
     Active Substance: BETAMETHASONE\BETAMETHASONE DIPROPIONATE\CLOTRIMAZOLE
     Dosage: 250.0MG UNKNOWN
  79. HYDROCODONE?HOMATROPINE [Concomitant]
     Dosage: 250.0MG UNKNOWN
  80. BENZONATATE. [Concomitant]
     Active Substance: BENZONATATE
     Dosage: 250.0MG UNKNOWN
  81. TRAMADOL. [Concomitant]
     Active Substance: TRAMADOL
     Dosage: 250.0MG UNKNOWN
  82. MAGNESIUM SULFATE. [Concomitant]
     Active Substance: MAGNESIUM SULFATE
     Dosage: 250.0MG UNKNOWN
  83. SILDENAFIL. [Concomitant]
     Active Substance: SILDENAFIL
     Dosage: 250.0MG UNKNOWN
  84. MAGNESIUM [Concomitant]
     Active Substance: MAGNESIUM
     Dosage: 250.0MG UNKNOWN
  85. POLYMYXIN B?TMP [Concomitant]
     Dosage: 250.0MG UNKNOWN
  86. FEXOFENADINE [Concomitant]
     Active Substance: FEXOFENADINE HYDROCHLORIDE
     Dosage: 250.0MG UNKNOWN
  87. DOCUSATE SODIUM. [Concomitant]
     Active Substance: DOCUSATE SODIUM
     Dosage: 250.0MG UNKNOWN
  88. METHYLPREDNISOLONE. [Concomitant]
     Active Substance: METHYLPREDNISOLONE
     Dosage: 250.0MG UNKNOWN
  89. DESONIDE. [Concomitant]
     Active Substance: DESONIDE
     Dosage: 250.0MG UNKNOWN
  90. DOXYCYCLINE HYCLATE. [Concomitant]
     Active Substance: DOXYCYCLINE HYCLATE
     Dosage: 250.0MG UNKNOWN
  91. METOPROLOL TARTRATE. [Concomitant]
     Active Substance: METOPROLOL TARTRATE
     Dosage: 250.0MG UNKNOWN
  92. POLYETHYLENE GLYCOL [Concomitant]
     Active Substance: POLYETHYLENE GLYCOLS
     Dosage: 250.0MG UNKNOWN
  93. MORPHINE [Concomitant]
     Active Substance: MORPHINE
     Dosage: 250.0MG UNKNOWN
  94. SODIUM BIPHOSPHATE?SODIUM PHOPHATE [Concomitant]
     Dosage: 250.0MG UNKNOWN
  95. POLLEN [Concomitant]
     Active Substance: BEE POLLEN
     Dosage: 250.0MG UNKNOWN
  96. FERRITIN [Concomitant]
     Active Substance: FERRITIN
     Dosage: 250.0MG UNKNOWN
  97. VITAMIN C [Concomitant]
     Active Substance: ASCORBIC ACID
  98. CEFUROXIME AXETIL. [Concomitant]
     Active Substance: CEFUROXIME AXETIL

REACTIONS (3)
  - Chronic kidney disease [Not Recovered/Not Resolved]
  - Acute kidney injury [Unknown]
  - Renal failure [Unknown]

NARRATIVE: CASE EVENT DATE: 20180119
